FAERS Safety Report 7920214-3 (Version None)
Quarter: 2011Q4

REPORT INFORMATION
  Report Type: 
  Country: None (occurrence: None)
  Receive Date: 20111117
  Receipt Date: 20111115
  Transmission Date: 20120403
  Serious: Yes (Hospitalization)
  Sender: FDA-Public Use
  Company Number: US-PFIZER INC-2011280191

PATIENT
  Sex: Male
  Weight: 73.016 kg

DRUGS (1)
  1. DILANTIN [Suspect]
     Indication: CONVULSION
     Dosage: 100 MG (2 TABLETS OF 50MG), 3X/DAY
     Route: 048
     Dates: start: 20110722, end: 20110901

REACTIONS (1)
  - DRUG INTOLERANCE [None]
